FAERS Safety Report 23701038 (Version 7)
Quarter: 2025Q2

REPORT INFORMATION
  Report Type: Spontaneous
  Country: BR (occurrence: BR)
  Receive Date: 20240403
  Receipt Date: 20250514
  Transmission Date: 20250717
  Serious: Yes (Other)
  Sender: SANDOZ
  Company Number: BR-002147023-NVSC2023BR124101

PATIENT
  Age: 61 Year
  Sex: Female

DRUGS (11)
  1. ANASTROZOLE [Suspect]
     Active Substance: ANASTROZOLE
     Dosage: 1 MG, OTHER
     Route: 065
  2. ANASTROZOLE [Suspect]
     Active Substance: ANASTROZOLE
     Indication: Product used for unknown indication
     Route: 065
  3. KISQALI [Suspect]
     Active Substance: RIBOCICLIB SUCCINATE
     Route: 048
  4. KISQALI [Suspect]
     Active Substance: RIBOCICLIB SUCCINATE
     Route: 048
  5. KISQALI [Suspect]
     Active Substance: RIBOCICLIB SUCCINATE
     Route: 065
  6. KISQALI [Suspect]
     Active Substance: RIBOCICLIB SUCCINATE
     Dosage: 1 TABLET QD
     Route: 065
     Dates: start: 20240304
  7. KISQALI [Suspect]
     Active Substance: RIBOCICLIB SUCCINATE
     Dosage: 2 DOSAGE FORM (TABLET) QD (200 MG (63  COATED TABLETS)
     Route: 065
  8. KISQALI [Suspect]
     Active Substance: RIBOCICLIB SUCCINATE
     Route: 065
  9. KISQALI [Suspect]
     Active Substance: RIBOCICLIB SUCCINATE
     Route: 065
  10. KISQALI [Suspect]
     Active Substance: RIBOCICLIB SUCCINATE
     Indication: Breast cancer female
     Route: 065
     Dates: start: 20230413
  11. METAMIZOLE SODIUM [Concomitant]
     Active Substance: METAMIZOLE SODIUM
     Indication: Sleep disorder
     Route: 065

REACTIONS (28)
  - Renal impairment [Not Recovered/Not Resolved]
  - Blood pressure fluctuation [Unknown]
  - Arrhythmia [Unknown]
  - Metastases to spine [Unknown]
  - Metastases to bone [Unknown]
  - Breast discharge [Not Recovered/Not Resolved]
  - Gait disturbance [Unknown]
  - Brain fog [Unknown]
  - Wound [Unknown]
  - Blood creatinine abnormal [Unknown]
  - Blood urea abnormal [Unknown]
  - Hyperhidrosis [Unknown]
  - Weight increased [Unknown]
  - Renal disorder [Unknown]
  - Mental fatigue [Unknown]
  - Urine abnormality [Unknown]
  - Proteinuria [Unknown]
  - Gastritis [Recovering/Resolving]
  - Pain [Recovered/Resolved]
  - Speech disorder [Recovered/Resolved]
  - Cardiac disorder [Unknown]
  - Malaise [Recovered/Resolved]
  - Gastritis [Recovered/Resolved]
  - Asthenia [Recovering/Resolving]
  - Malaise [Unknown]
  - Fatigue [Unknown]
  - Vomiting [Recovered/Resolved]
  - Drug ineffective [Unknown]

NARRATIVE: CASE EVENT DATE: 20230511
